FAERS Safety Report 18663720 (Version 1)
Quarter: 2020Q4

REPORT INFORMATION
  Report Type: Spontaneous
  Country: US (occurrence: US)
  Receive Date: 20201224
  Receipt Date: 20201224
  Transmission Date: 20210114
  Serious: Yes (Other)
  Sender: FDA-Public Use
  Company Number: NVSC2020US290638

PATIENT
  Age: 44 Year
  Sex: Male

DRUGS (1)
  1. ARGATROBAN. [Suspect]
     Active Substance: ARGATROBAN
     Indication: ANTICOAGULANT THERAPY
     Dosage: 0.5 MCG/KG/MIN
     Route: 065

REACTIONS (3)
  - Transverse sinus thrombosis [Unknown]
  - Disease progression [Unknown]
  - Thrombocytopenia [Unknown]
